FAERS Safety Report 24311010 (Version 1)
Quarter: 2024Q3

REPORT INFORMATION
  Report Type: Report from Study
  Country: IN (occurrence: IN)
  Receive Date: 20240912
  Receipt Date: 20240912
  Transmission Date: 20241016
  Serious: Yes (Other)
  Sender: ROCHE
  Company Number: IN-002147023-NVSC2022IN140714

PATIENT
  Age: 63 Year
  Sex: Male

DRUGS (2)
  1. RANIBIZUMAB [Suspect]
     Active Substance: RANIBIZUMAB
     Indication: Diabetic retinopathy
     Dosage: 2.3 MG
     Route: 065
     Dates: start: 20220203
  2. RANIBIZUMAB [Suspect]
     Active Substance: RANIBIZUMAB
     Dosage: 0.5 MG, QMO
     Route: 050
     Dates: start: 20220616

REACTIONS (4)
  - Blindness [Unknown]
  - Visual impairment [Not Recovered/Not Resolved]
  - Eye oedema [Not Recovered/Not Resolved]
  - Drug ineffective [Unknown]

NARRATIVE: CASE EVENT DATE: 20220610
